FAERS Safety Report 13902059 (Version 1)
Quarter: 2017Q3

REPORT INFORMATION
  Report Type: Spontaneous
  Country: US (occurrence: US)
  Receive Date: 20170824
  Receipt Date: 20170824
  Transmission Date: 20171127
  Serious: No
  Sender: FDA-Public Use
  Company Number: US-BIOGEN-2017BI00448199

PATIENT
  Sex: Female

DRUGS (1)
  1. AVONEX [Suspect]
     Active Substance: INTERFERON BETA-1A
     Indication: MULTIPLE SCLEROSIS
     Route: 065
     Dates: start: 20040701

REACTIONS (10)
  - Swelling [Unknown]
  - Infection [Unknown]
  - Sensory disturbance [Unknown]
  - Gait inability [Unknown]
  - Balance disorder [Unknown]
  - Scar [Unknown]
  - Pain in extremity [Unknown]
  - Fall [Unknown]
  - Muscle spasms [Unknown]
  - Frustration tolerance decreased [Unknown]
